FAERS Safety Report 15301269 (Version 1)
Quarter: 2018Q3

REPORT INFORMATION
  Report Type: Spontaneous
  Country: IN (occurrence: IN)
  Receive Date: 20180821
  Receipt Date: 20180821
  Transmission Date: 20181010
  Serious: Yes (Other)
  Sender: FDA-Public Use
  Company Number: IN-CMP PHARMA-2018CMP00026

PATIENT
  Age: 64 Year
  Sex: Male

DRUGS (1)
  1. TRIAMCINOLONE [Suspect]
     Active Substance: TRIAMCINOLONE
     Indication: DIABETIC RETINAL OEDEMA
     Dosage: 4 MG, UNK
     Route: 031

REACTIONS (1)
  - Eye infection toxoplasmal [Recovered/Resolved]
